FAERS Safety Report 17562667 (Version 1)
Quarter: 2020Q1

REPORT INFORMATION
  Report Type: Spontaneous
  Country: CN (occurrence: CN)
  Receive Date: 20200319
  Receipt Date: 20200319
  Transmission Date: 20200409
  Serious: Yes (Hospitalization)
  Sender: FDA-Public Use
  Company Number: CN-FRESENIUS KABI-FK202002590

PATIENT
  Age: 80 Year
  Sex: Male
  Weight: 50 kg

DRUGS (4)
  1. INTRALIPID [Suspect]
     Active Substance: EGG PHOSPHOLIPIDS\GLYCERIN\SOYBEAN OIL
     Indication: NUTRITIONAL SUPPLEMENTATION
     Dosage: 500ML QD
     Route: 041
     Dates: start: 20200309, end: 20200310
  2. GLUCOSE [Concomitant]
     Active Substance: DEXTROSE
     Indication: HEPATIC FUNCTION ABNORMAL
     Dosage: 500ML QD
     Route: 041
     Dates: start: 20200309
  3. ALBUMIN HUMAN [Concomitant]
     Active Substance: ALBUMIN HUMAN
     Indication: HEPATIC FUNCTION ABNORMAL
     Dosage: 10G QD
     Route: 041
     Dates: start: 20200309, end: 20200311
  4. GLUTATHIONE [Concomitant]
     Active Substance: GLUTATHIONE
     Indication: HEPATIC FUNCTION ABNORMAL
     Dosage: 1.8G QD
     Route: 041
     Dates: start: 20200309, end: 20200311

REACTIONS (1)
  - Phlebitis [Unknown]

NARRATIVE: CASE EVENT DATE: 20200310
